FAERS Safety Report 22673727 (Version 3)
Quarter: 2024Q1

REPORT INFORMATION
  Report Type: Spontaneous
  Country: US (occurrence: US)
  Receive Date: 20230705
  Receipt Date: 20240104
  Transmission Date: 20240409
  Serious: Yes (Hospitalization, Other)
  Sender: FDA-Public Use
  Company Number: US-PFIZER INC-2020067089

PATIENT
  Age: 66 Year
  Sex: Male
  Weight: 102.06 kg

DRUGS (6)
  1. VYNDAMAX [Suspect]
     Active Substance: TAFAMIDIS
     Indication: Cardiac amyloidosis
     Dosage: UNK
     Dates: start: 201709
  2. VYNDAMAX [Suspect]
     Active Substance: TAFAMIDIS
     Dosage: 61 MG, DAILY
     Route: 048
     Dates: start: 201809
  3. VYNDAMAX [Suspect]
     Active Substance: TAFAMIDIS
     Dosage: UNK
  4. VYNDAMAX [Suspect]
     Active Substance: TAFAMIDIS
     Dosage: A HIGHER DOSE
     Dates: start: 20190916
  5. VYNDAMAX [Suspect]
     Active Substance: TAFAMIDIS
     Dosage: 61MG, ONCE A DAY IN THE MORNING
  6. CEFDINIR [Concomitant]
     Active Substance: CEFDINIR
     Indication: Pharyngitis streptococcal
     Dosage: 300 MG, 2X/DAY

REACTIONS (11)
  - Eye disorder [Unknown]
  - Gastric cancer [Unknown]
  - Gastric haemorrhage [Recovered/Resolved]
  - Ventricular assist device insertion [Unknown]
  - Heart transplant [Unknown]
  - Metastases to peritoneum [Unknown]
  - Diplopia [Unknown]
  - Vision blurred [Unknown]
  - Chest pain [Unknown]
  - Hypoacusis [Unknown]
  - Off label use [Unknown]

NARRATIVE: CASE EVENT DATE: 20171101
